FAERS Safety Report 8267453-2 (Version None)
Quarter: 2012Q2

REPORT INFORMATION
  Report Type: 
  Country: None (occurrence: None)
  Receive Date: 20120409
  Receipt Date: 20120404
  Transmission Date: 20120825
  Serious: Yes (Death, Other)
  Sender: FDA-Public Use
  Company Number: PHHY2011FR112586

PATIENT
  Sex: Female
  Weight: 53 kg

DRUGS (1)
  1. ZOMETA [Suspect]
     Indication: METASTASES TO BONE
     Dosage: 4 MG, EVERY 21 DAYS
     Route: 042
     Dates: start: 20090824, end: 20100617

REACTIONS (4)
  - TOOTH AVULSION [None]
  - DEATH [None]
  - OSTEONECROSIS OF JAW [None]
  - IMPAIRED HEALING [None]
